FAERS Safety Report 8383979-5 (Version None)
Quarter: 2012Q2

REPORT INFORMATION
  Report Type: 
  Country: None (occurrence: None)
  Receive Date: 20120524
  Receipt Date: 20120510
  Transmission Date: 20120825
  Serious: Yes (Other)
  Sender: FDA-Public Use
  Company Number: IT-ROCHE-1067649

PATIENT

DRUGS (3)
  1. AVASTIN [Suspect]
     Indication: COLON CANCER
     Route: 042
     Dates: start: 20120116, end: 20120402
  2. FLUOROURACIL [Concomitant]
     Route: 041
     Dates: start: 20120116, end: 20120403
  3. FLUOROURACIL [Concomitant]
     Route: 042
     Dates: start: 20120116, end: 20120403

REACTIONS (1)
  - PULMONARY ARTERY THROMBOSIS [None]
